FAERS Safety Report 10170237 (Version 1)
Quarter: 2014Q2

REPORT INFORMATION
  Report Type: Report from Study
  Country: DE (occurrence: DE)
  Receive Date: 20140513
  Receipt Date: 20140513
  Transmission Date: 20141212
  Serious: Yes (Other)
  Sender: FDA-Public Use
  Company Number: DE-ABBVIE-14P-062-1234687-00

PATIENT
  Sex: 0

DRUGS (2)
  1. HUMIRA [Suspect]
     Indication: RHEUMATOID ARTHRITIS
     Route: 058
     Dates: end: 20131210
  2. HUMIRA [Suspect]
     Dosage: .
     Route: 058
     Dates: start: 20130109

REACTIONS (2)
  - Synovial cyst [Unknown]
  - Fat necrosis [Unknown]
